FAERS Safety Report 17963522 (Version 2)
Quarter: 2020Q4

REPORT INFORMATION
  Report Type: Spontaneous
  Country: AR (occurrence: AR)
  Receive Date: 20200630
  Receipt Date: 20201028
  Transmission Date: 20210113
  Serious: Yes (Other)
  Sender: FDA-Public Use
  Company Number: AR-PFIZER INC-2020248049

PATIENT
  Age: 69 Year
  Sex: Male

DRUGS (1)
  1. XELJANZ XR [Suspect]
     Active Substance: TOFACITINIB CITRATE
     Indication: RHEUMATOID ARTHRITIS
     Dosage: 11 MG, 1X/DAY
     Dates: start: 20200118, end: 20200906

REACTIONS (5)
  - Gait inability [Unknown]
  - Bone disorder [Unknown]
  - Diabetes mellitus [Unknown]
  - Bladder disorder [Unknown]
  - Osteoarthritis [Unknown]

NARRATIVE: CASE EVENT DATE: 2020
